FAERS Safety Report 23764546 (Version 2)
Quarter: 2024Q2

REPORT INFORMATION
  Report Type: Spontaneous
  Country: US (occurrence: US)
  Receive Date: 20240420
  Receipt Date: 20240517
  Transmission Date: 20240716
  Serious: No
  Sender: FDA-Public Use
  Company Number: US-DECIPHERA PHARMACEUTICALS LLC-2024US000337

PATIENT
  Sex: Female

DRUGS (3)
  1. QINLOCK [Suspect]
     Active Substance: RIPRETINIB
     Indication: Product used for unknown indication
     Dosage: UNK, LOWER DOSE
     Dates: start: 202206
  2. QINLOCK [Suspect]
     Active Substance: RIPRETINIB
     Dosage: UNK, INCREASED DOSE
  3. QINLOCK [Suspect]
     Active Substance: RIPRETINIB
     Dosage: UNK, LOWER DOSE

REACTIONS (2)
  - Mucosal inflammation [Recovered/Resolved]
  - Diarrhoea [Recovered/Resolved]
